FAERS Safety Report 5704652-5 (Version None)
Quarter: 2008Q2

REPORT INFORMATION
  Report Type: 
  Country: None (occurrence: None)
  Receive Date: 20080409
  Receipt Date: 20080402
  Transmission Date: 20081010
  Serious: Yes (Death)
  Sender: FDA-Public Use
  Company Number: 163-21880-08011193

PATIENT
  Age: 80 Year
  Sex: Male

DRUGS (6)
  1. REVLIMID [Suspect]
     Indication: MULTIPLE MYELOMA
     Dosage: 10 MG, QD, ORAL
     Route: 048
     Dates: start: 20060711, end: 20070504
  2. SYNTHROID [Concomitant]
  3. DARVOCET [Concomitant]
  4. APAP (PARACETAMOL) [Concomitant]
  5. NEURONTIN [Concomitant]
  6. LYRICA [Concomitant]

REACTIONS (2)
  - MALIGNANT NEOPLASM PROGRESSION [None]
  - MULTIPLE MYELOMA [None]
